FAERS Safety Report 7770462-0 (Version None)
Quarter: 2011Q3

REPORT INFORMATION
  Report Type: 
  Country: None (occurrence: None)
  Receive Date: 20110922
  Receipt Date: 20110113
  Transmission Date: 20111222
  Serious: No
  Sender: FDA-Public Use
  Company Number: US-ASTRAZENECA-2007UW03199

PATIENT
  Age: 9205 Day
  Sex: Female
  Weight: 66 kg

DRUGS (15)
  1. XANAX [Concomitant]
     Dates: start: 20060101
  2. LITHOBID [Concomitant]
     Dates: start: 20021102
  3. SEROQUEL [Suspect]
     Indication: BIPOLAR DISORDER
     Route: 048
     Dates: start: 20020515
  4. BUSPIRONE HCL [Concomitant]
     Dates: start: 20041029
  5. ZYPREXA [Concomitant]
     Dates: start: 20011001
  6. LITHIUM CARBONATE [Concomitant]
     Dates: start: 20011025, end: 20060825
  7. BUSPAR [Concomitant]
     Dates: start: 20050101
  8. ABILIFY [Concomitant]
     Dosage: 10-15 MG
     Dates: start: 20070101
  9. ZOLOFT [Concomitant]
     Dosage: 50 MG TWO IN THE MORNING
     Dates: start: 19991209
  10. SEROQUEL [Suspect]
     Route: 048
     Dates: start: 20030819
  11. PRILOSEC [Concomitant]
     Dates: start: 19991209
  12. TRAZODONE HYDROCHLORIDE [Concomitant]
     Dates: start: 19991209
  13. SEROQUEL [Suspect]
     Route: 048
     Dates: start: 20020517
  14. ACETAMINOPHEN AND HYDROCODONE BITARTRATE [Concomitant]
     Dates: start: 20030929
  15. RISPERDAL [Concomitant]
     Dates: start: 20060101

REACTIONS (3)
  - TYPE 2 DIABETES MELLITUS [None]
  - TYPE 1 DIABETES MELLITUS [None]
  - VISION BLURRED [None]
